FAERS Safety Report 24537467 (Version 1)
Quarter: 2024Q4

REPORT INFORMATION
  Report Type: Spontaneous
  Country: CA (occurrence: CA)
  Receive Date: 20241022
  Receipt Date: 20241022
  Transmission Date: 20250115
  Serious: Yes (Hospitalization, Disabling)
  Sender: ORGANON
  Company Number: CA-ORGANON-O2410CAN001703

PATIENT
  Age: 73 Year
  Sex: Female

DRUGS (2)
  1. ASMANEX [Interacting]
     Active Substance: MOMETASONE FUROATE
     Dosage: UNK
  2. SPORANOX [Interacting]
     Active Substance: ITRACONAZOLE
     Dosage: UNK
     Route: 065

REACTIONS (4)
  - Adrenal insufficiency [Unknown]
  - Cushing^s syndrome [Unknown]
  - Drug interaction [Unknown]
  - Inhibitory drug interaction [Unknown]
